FAERS Safety Report 11637385 (Version 2)
Quarter: 2016Q3

REPORT INFORMATION
  Report Type: Spontaneous
  Country: US (occurrence: US)
  Receive Date: 20151016
  Receipt Date: 20160910
  Transmission Date: 20161109
  Serious: No
  Sender: FDA-Public Use
  Company Number: US-ASTRAZENECA-2015SE96598

PATIENT
  Sex: Male
  Weight: 83.9 kg

DRUGS (2)
  1. ASPIRIN. [Concomitant]
     Active Substance: ASPIRIN
     Indication: SUPPLEMENTATION THERAPY
     Route: 048
  2. BRILINTA [Suspect]
     Active Substance: TICAGRELOR
     Indication: THROMBOSIS PROPHYLAXIS
     Route: 048
     Dates: start: 201505

REACTIONS (5)
  - Chest pain [Unknown]
  - Dyspnoea [Unknown]
  - Pruritus [Unknown]
  - Drug dose omission [Unknown]
  - Haemorrhage [Unknown]

NARRATIVE: CASE EVENT DATE: 201508
